FAERS Safety Report 7964977-X (Version None)
Quarter: 2011Q4

REPORT INFORMATION
  Report Type: 
  Country: None (occurrence: None)
  Receive Date: 20111208
  Receipt Date: 20110830
  Transmission Date: 20120403
  Serious: No
  Sender: FDA-Public Use
  Company Number: US-BAYER-2011-086577

PATIENT
  Sex: Female
  Weight: 63 kg

DRUGS (1)
  1. ALEVE (CAPLET) [Suspect]
     Indication: PAIN IN EXTREMITY
     Dosage: 2 DF, QD
     Route: 048
     Dates: start: 20110601

REACTIONS (2)
  - PAIN IN EXTREMITY [None]
  - DERMATITIS [None]
